FAERS Safety Report 5530544-0 (Version None)
Quarter: 2007Q4

REPORT INFORMATION
  Report Type: 
  Country: None (occurrence: None)
  Receive Date: 20071130
  Receipt Date: 20071119
  Transmission Date: 20080405
  Serious: Yes (Other)
  Sender: FDA-Public Use
  Company Number: US-JNJFOC-20071107644

PATIENT
  Sex: Male

DRUGS (7)
  1. TYLOX [Suspect]
     Indication: PAIN
     Dosage: 5/500MG
     Route: 048
  2. LANTUS [Concomitant]
     Indication: DIABETES MELLITUS
     Dosage: DAILY
     Route: 058
  3. DIOVAN [Concomitant]
     Indication: HYPERTENSION
     Route: 048
  4. KRISTALOSE [Concomitant]
     Indication: LAXATIVE SUPPORTIVE CARE
     Dosage: DAILY
     Route: 048
  5. SUPER B COMPLEX [Concomitant]
     Route: 048
  6. OXY IR [Concomitant]
     Indication: PAIN
     Route: 048
  7. OXYCODONE HCL [Concomitant]
     Indication: PAIN
     Route: 048

REACTIONS (4)
  - CONFUSIONAL STATE [None]
  - DISORIENTATION [None]
  - HEPATITIS C [None]
  - WEIGHT DECREASED [None]
